FAERS Safety Report 15352373 (Version 5)
Quarter: 2018Q4

REPORT INFORMATION
  Report Type: Spontaneous
  Country: US (occurrence: US)
  Receive Date: 20180905
  Receipt Date: 20181017
  Transmission Date: 20190204
  Serious: No
  Sender: FDA-Public Use
  Company Number: US-PFIZER INC-2018358252

PATIENT
  Age: 78 Year
  Sex: Female
  Weight: 63 kg

DRUGS (3)
  1. ESTRADIOL. [Concomitant]
     Active Substance: ESTRADIOL
     Dosage: UNK (05 ESTRADIOL PATCH)
     Dates: start: 1994
  2. ESTRING [Suspect]
     Active Substance: ESTRADIOL
     Indication: ATROPHY
  3. ESTRING [Suspect]
     Active Substance: ESTRADIOL
     Indication: VULVOVAGINAL DRYNESS
     Dosage: 2 MG, EVERY 3 MONTHS (2MG VAGINAL RING-1 RING INSERTED VAGINALLY EVERY 90 DAYS)
     Route: 067
     Dates: start: 20180817, end: 20180824

REACTIONS (4)
  - Application site pain [Recovered/Resolved]
  - Product use complaint [Recovered/Resolved]
  - Product complaint [Recovered/Resolved]
  - Vulvovaginal discomfort [Unknown]

NARRATIVE: CASE EVENT DATE: 20180817
